FAERS Safety Report 16544695 (Version 2)
Quarter: 2023Q1

REPORT INFORMATION
  Report Type: Spontaneous
  Country: CZ (occurrence: CZ)
  Receive Date: 20190709
  Receipt Date: 20230222
  Transmission Date: 20230417
  Serious: Yes (Other)
  Sender: FDA-Public Use
  Company Number: CZ-NOVPHSZ-PHHY2019CZ012525

PATIENT
  Sex: Female

DRUGS (7)
  1. CAPECITABINE [Suspect]
     Active Substance: CAPECITABINE
     Indication: Colorectal cancer
     Dosage: UNK
     Route: 065
     Dates: end: 201604
  2. OXALIPLATIN [Suspect]
     Active Substance: OXALIPLATIN
     Indication: Colorectal cancer
     Dosage: UNK, 1 CYCLICAL
     Route: 065
     Dates: start: 20150515, end: 201604
  3. LEUCOVORIN [Suspect]
     Active Substance: LEUCOVORIN
     Indication: Colorectal cancer
     Dosage: 1 CYCLICAL (ALSO FROM 25-APR-2016 IN FOLFIRI)
     Route: 065
     Dates: start: 20150515, end: 201604
  4. AVASTIN [Suspect]
     Active Substance: BEVACIZUMAB
     Indication: Colorectal cancer
     Dosage: 1 UNK, Q3W TIW
     Route: 065
     Dates: end: 201604
  5. FLUOROURACIL [Suspect]
     Active Substance: FLUOROURACIL
     Indication: Colorectal cancer
     Dosage: 1 CYCLICAL (ALSO FROM 25-APR-2016 IN FOLFIRI)
     Route: 065
     Dates: start: 20150515, end: 201604
  6. BEVACIZUMAB [Concomitant]
     Active Substance: BEVACIZUMAB
     Dosage: UNK, 1 CYCLICAL
     Route: 065
     Dates: start: 20150515, end: 201604
  7. CAPECITABINE [Concomitant]
     Active Substance: CAPECITABINE
     Dosage: UNK, Q3W (EVERY 3 WEEKS)
     Route: 065
     Dates: end: 201604

REACTIONS (4)
  - Metastases to lung [Unknown]
  - Malignant neoplasm progression [Unknown]
  - Neurotoxicity [Unknown]
  - Mucosal toxicity [Unknown]

NARRATIVE: CASE EVENT DATE: 20150101
